FAERS Safety Report 6919923-4 (Version None)
Quarter: 2010Q3

REPORT INFORMATION
  Report Type: 
  Country: None (occurrence: None)
  Receive Date: 20100811
  Receipt Date: 20100729
  Transmission Date: 20110219
  Serious: Yes (Other)
  Sender: FDA-Public Use
  Company Number: PHEH2010US03510

PATIENT
  Sex: Male

DRUGS (1)
  1. ZOMETA [Suspect]

REACTIONS (6)
  - DEFORMITY [None]
  - INFECTION [None]
  - OSTEONECROSIS OF JAW [None]
  - OVERDOSE [None]
  - PAIN [None]
  - PARTNER STRESS [None]
